FAERS Safety Report 6377826-0 (Version None)
Quarter: 2009Q3

REPORT INFORMATION
  Report Type: 
  Country: None (occurrence: None)
  Receive Date: 20090925
  Receipt Date: 20090916
  Transmission Date: 20100115
  Serious: Yes (Congenital Anomaly)
  Sender: FDA-Public Use
  Company Number: TR-ELI_LILLY_AND_COMPANY-TR200909003575

PATIENT
  Sex: Male

DRUGS (2)
  1. HUMULIN R [Suspect]
     Indication: GESTATIONAL DIABETES
     Dosage: 4 IU, 3/D
     Route: 064
     Dates: start: 20090701, end: 20090718
  2. HUMULIN N [Suspect]
     Indication: GESTATIONAL DIABETES
     Dosage: 6 U, DAILY (1/D)
     Route: 064
     Dates: start: 20090701, end: 20090718

REACTIONS (2)
  - DRUG EXPOSURE DURING PREGNANCY [None]
  - HEART DISEASE CONGENITAL [None]
